FAERS Safety Report 17293327 (Version 1)
Quarter: 2020Q1

REPORT INFORMATION
  Report Type: Spontaneous
  Country: GB (occurrence: GB)
  Receive Date: 20200121
  Receipt Date: 20200121
  Transmission Date: 20200409
  Serious: Yes (Hospitalization)
  Sender: FDA-Public Use
  Company Number: GB-TEVA-2020-GB-1170053

PATIENT
  Age: 19 Year
  Sex: Female
  Weight: 47 kg

DRUGS (9)
  1. BACLOFEN. [Concomitant]
     Active Substance: BACLOFEN
  2. CLONIDINE. [Concomitant]
     Active Substance: CLONIDINE
  3. CHLORAL HYDRATE [Concomitant]
     Active Substance: CHLORAL HYDRATE
  4. VITAMIN D [Concomitant]
     Active Substance: VITAMIN D NOS
  5. GABAPENTIN. [Suspect]
     Active Substance: GABAPENTIN
     Indication: ANALGESIC THERAPY
     Dosage: 900
     Route: 048
     Dates: start: 201512, end: 201812
  6. QUETIAPINE. [Concomitant]
     Active Substance: QUETIAPINE
  7. CANNABIDIOL [Concomitant]
     Active Substance: CANNABIDIOL
  8. DOMPERIDONE [Concomitant]
     Active Substance: DOMPERIDONE
  9. DIAZEPAM. [Concomitant]
     Active Substance: DIAZEPAM

REACTIONS (6)
  - Nausea [Recovered/Resolved]
  - Impaired gastric emptying [Recovered/Resolved]
  - Vomiting [Recovered/Resolved]
  - Dystonia [Recovered/Resolved]
  - Condition aggravated [Recovered/Resolved]
  - Haematemesis [Recovered/Resolved]
